FAERS Safety Report 8306188-4 (Version None)
Quarter: 2012Q2

REPORT INFORMATION
  Report Type: 
  Country: None (occurrence: None)
  Receive Date: 20120423
  Receipt Date: 20120419
  Transmission Date: 20120825
  Serious: Yes (Hospitalization, Other)
  Sender: FDA-Public Use
  Company Number: FR-PFIZER INC-2012084695

PATIENT
  Age: 64 Year
  Sex: Female

DRUGS (11)
  1. CAPTOPRIL [Concomitant]
     Dosage: 25 MG, 1X/DAY
  2. REPAGLINIDE [Concomitant]
     Dosage: 1 MG, 3X/DAY
  3. PROPRANOLOL [Concomitant]
     Dosage: 160 MG, UNK
  4. PREVISCAN [Concomitant]
     Dosage: UNSPECIFIED NUMBER OF TABLETS EVERY OTHER DAY
  5. DIGOXIN [Concomitant]
     Dosage: 1 DF, 1X/DAY
  6. NOZINAN [Concomitant]
     Dosage: 4% ORAL SOLUTION 20 GTT, AT BEDTIME
  7. ZITHROMAX [Suspect]
     Indication: ANTIBIOTIC PROPHYLAXIS
     Dosage: 250 MG, 2 TABLETS PER WEEK
     Route: 048
     Dates: start: 20120109, end: 20120131
  8. TRAMADOL HCL [Concomitant]
     Indication: PAIN
     Dosage: 150 MG, AS NEEDED
  9. PYOSTACINE [Concomitant]
     Indication: ANTIBIOTIC PROPHYLAXIS
     Dosage: UNK
     Dates: start: 20111201
  10. AMOXICILLIN TRIHYDRATE [Concomitant]
     Dosage: UNK
     Dates: start: 20120106, end: 20120120
  11. GLUCOPHAGE [Concomitant]
     Dosage: 500 MG, 1X/DAY

REACTIONS (7)
  - CARDIAC FAILURE [None]
  - RALES [None]
  - ERYTHEMA [None]
  - PRURITUS [None]
  - PYREXIA [None]
  - RASH MACULAR [None]
  - TACHYCARDIA [None]
